FAERS Safety Report 6143562-9 (Version None)
Quarter: 2009Q2

REPORT INFORMATION
  Report Type: 
  Country: None (occurrence: None)
  Receive Date: 20090403
  Receipt Date: 20090323
  Transmission Date: 20091009
  Serious: Yes (Other)
  Sender: FDA-Public Use
  Company Number: US-PFIZER INC-2009192263

PATIENT
  Age: 28 Year
  Sex: Male
  Weight: 104.32 kg

DRUGS (2)
  1. VIAGRA [Suspect]
     Indication: ERECTILE DYSFUNCTION
     Dates: start: 20090321
  2. ALCOHOL [Suspect]

REACTIONS (1)
  - SYNCOPE [None]
